FAERS Safety Report 19959230 (Version 1)
Quarter: 2021Q4

REPORT INFORMATION
  Report Type: Spontaneous
  Country: US (occurrence: US)
  Receive Date: 20211013
  Receipt Date: 20211013
  Transmission Date: 20220303
  Serious: No
  Sender: FDA-Public Use
  Company Number: None

PATIENT
  Sex: Female

DRUGS (1)
  1. EPOPROSTENOL [Suspect]
     Active Substance: EPOPROSTENOL
     Indication: Pulmonary arterial hypertension
     Dosage: ?          OTHER DOSE:14NG/KG/MIN;OTHER FREQUENCY:CONTINUOUS;
     Route: 042
     Dates: start: 20210519

REACTIONS (2)
  - Headache [None]
  - Palpitations [None]
